FAERS Safety Report 20559704 (Version 1)
Quarter: 2022Q1

REPORT INFORMATION
  Report Type: Spontaneous
  Country: US (occurrence: None)
  Receive Date: 20220304
  Receipt Date: 20220304
  Transmission Date: 20220424
  Serious: Yes (unspecified)
  Sender: FDA-Public Use
  Company Number: None

PATIENT
  Age: 44 Year
  Sex: Male
  Weight: 81.6 kg

DRUGS (6)
  1. REMICADE [Suspect]
     Active Substance: INFLIXIMAB
     Indication: Hidradenitis
     Dosage: FREQUENCY : MONTHLY;?
     Route: 042
     Dates: start: 20211130
  2. CLINDAMYCIN [Concomitant]
     Active Substance: CLINDAMYCIN
  3. HIBICLENS [Concomitant]
     Active Substance: CHLORHEXIDINE GLUCONATE
  4. METRONIDAZOLE [Concomitant]
     Active Substance: METRONIDAZOLE
  5. NIACIN [Concomitant]
     Active Substance: NIACIN
  6. ZINC SULFATE [Concomitant]
     Active Substance: ZINC SULFATE

REACTIONS (2)
  - Hypoaesthesia [None]
  - Back pain [None]

NARRATIVE: CASE EVENT DATE: 20220217
